FAERS Safety Report 13647107 (Version 1)
Quarter: 2017Q2

REPORT INFORMATION
  Report Type: Spontaneous
  Country: US (occurrence: US)
  Receive Date: 20170613
  Receipt Date: 20170613
  Transmission Date: 20170830
  Serious: No
  Sender: FDA-Public Use
  Company Number: US-ALLERGAN-1657443US

PATIENT
  Age: 66 Year
  Sex: Male

DRUGS (1)
  1. CORDRAN [Suspect]
     Active Substance: FLURANDRENOLIDE
     Indication: DRY SKIN
     Dosage: UNK
     Route: 061
     Dates: start: 2014, end: 201512

REACTIONS (4)
  - Excoriation [Not Recovered/Not Resolved]
  - Pruritus [Not Recovered/Not Resolved]
  - Dry skin [Not Recovered/Not Resolved]
  - Infection [Not Recovered/Not Resolved]

NARRATIVE: CASE EVENT DATE: 201512
